FAERS Safety Report 15664754 (Version 6)
Quarter: 2020Q2

REPORT INFORMATION
  Report Type: Spontaneous
  Country: US (occurrence: US)
  Receive Date: 20181128
  Receipt Date: 20200527
  Transmission Date: 20200713
  Serious: Yes (Other)
  Sender: FDA-Public Use
  Company Number: US-PFIZER INC-2017220854

PATIENT
  Age: 64 Year
  Sex: Male
  Weight: 68 kg

DRUGS (7)
  1. DULOXETINE. [Concomitant]
     Active Substance: DULOXETINE
     Indication: DEPRESSION
     Dosage: 60 MG, 1X/DAY (IN THE MORNING)
     Route: 048
     Dates: start: 2014
  2. RANITIDINE. [Concomitant]
     Active Substance: RANITIDINE
     Indication: GASTROOESOPHAGEAL REFLUX DISEASE
     Dosage: 300 MG, AS NEEDED
     Route: 048
     Dates: start: 2016
  3. LYRICA [Suspect]
     Active Substance: PREGABALIN
     Indication: PAIN
     Dosage: 150 MG, 3X/DAY
     Route: 048
     Dates: start: 2016
  4. RECLAST [Concomitant]
     Active Substance: ZOLEDRONIC ACID
     Indication: OSTEOARTHRITIS
     Dosage: UNK (INFUSION ONCE YEARLY)
     Dates: start: 201606
  5. LYRICA [Suspect]
     Active Substance: PREGABALIN
     Dosage: 150 MG, 4X/DAY
     Route: 048
  6. DULOXETINE. [Concomitant]
     Active Substance: DULOXETINE
     Indication: PAIN
  7. TRIAZOLAM. [Concomitant]
     Active Substance: TRIAZOLAM
     Indication: INSOMNIA
     Dosage: 0.5 MG, DAILY (0.25MG TABLETS-2 TABLETS (0.5MG TOTAL) AT BEDTIME DAILY)
     Route: 048
     Dates: start: 1999

REACTIONS (11)
  - Asthenia [Unknown]
  - Dizziness [Unknown]
  - Dyspnoea [Unknown]
  - Product dose omission [Unknown]
  - Respiratory tract congestion [Not Recovered/Not Resolved]
  - Pneumonia [Recovered/Resolved]
  - Therapeutic product effect delayed [Unknown]
  - Haemoptysis [Unknown]
  - Euphoric mood [Recovered/Resolved]
  - Vomiting [Unknown]
  - Hypersensitivity [Not Recovered/Not Resolved]

NARRATIVE: CASE EVENT DATE: 2018
